FAERS Safety Report 4745341-3 (Version None)
Quarter: 2005Q3

REPORT INFORMATION
  Report Type: 
  Country: None (occurrence: None)
  Receive Date: 20050812
  Receipt Date: 20050803
  Transmission Date: 20060218
  Serious: Yes (Death, Other)
  Sender: FDA-Public Use
  Company Number: USA-2005-0020669

PATIENT
  Age: 48 Year
  Sex: Male
  Weight: 103.4 kg

DRUGS (8)
  1. OXYCODONE HCL [Suspect]
  2. XANAX [Suspect]
  3. ZYPREXA [Suspect]
  4. FLEXERIL [Suspect]
  5. LORAZEPAM [Suspect]
  6. ULTRAM [Suspect]
  7. AMITRIPTYLINE HCL [Suspect]
  8. CAFFEINE (CAFFEINE) [Suspect]

REACTIONS (7)
  - ACCIDENTAL DEATH [None]
  - ASTHENIA [None]
  - DRUG ABUSER [None]
  - INTENTIONAL MISUSE [None]
  - MULTIPLE DRUG OVERDOSE [None]
  - SUICIDAL IDEATION [None]
  - SYNCOPE [None]
